FAERS Safety Report 8026054-1 (Version None)
Quarter: 2012Q1

REPORT INFORMATION
  Report Type: 
  Country: None (occurrence: None)
  Receive Date: 20120105
  Receipt Date: 20111229
  Transmission Date: 20120608
  Serious: Yes (Hospitalization)
  Sender: FDA-Public Use
  Company Number: US-US-EMD SERONO, INC.-233112J09USA

PATIENT
  Sex: Female
  Weight: 91 kg

DRUGS (14)
  1. SOTALOL HCL [Concomitant]
     Indication: ATRIAL FIBRILLATION
  2. FISH OIL [Concomitant]
  3. ENTOCORT EC [Concomitant]
     Indication: CROHN'S DISEASE
     Dates: start: 20090101
  4. MALTEC [Concomitant]
  5. UNSPECIFIED MEDICATIONS [Concomitant]
  6. METOPROLOL [Concomitant]
     Indication: ATRIAL FIBRILLATION
  7. METOPROLOL [Concomitant]
     Indication: HEART RATE
  8. SIMVASTATIN [Concomitant]
     Indication: ATRIAL FIBRILLATION
  9. ASPIRIN [Concomitant]
  10. COUMADIN [Concomitant]
     Dates: start: 20100701
  11. REBIF [Suspect]
     Route: 058
     Dates: start: 20111111
  12. CELEXA [Concomitant]
     Dates: start: 20091117
  13. REBIF [Suspect]
     Indication: MULTIPLE SCLEROSIS
     Route: 058
     Dates: start: 20070813, end: 20100101
  14. PROZAC [Concomitant]
     Dates: end: 20091117

REACTIONS (6)
  - INFLUENZA LIKE ILLNESS [None]
  - ATRIAL FLUTTER [None]
  - ARRHYTHMIA [None]
  - ATRIAL FIBRILLATION [None]
  - TACHYCARDIA [None]
  - MUSCULOSKELETAL STIFFNESS [None]
